FAERS Safety Report 8957322 (Version 1)
Quarter: 2012Q4

REPORT INFORMATION
  Report Type: 
  Country: US (occurrence: US)
  Receive Date: 20121211
  Receipt Date: 20121211
  Transmission Date: 20130627
  Serious: Yes (Other)
  Sender: FDA-Public Use
  Company Number: US-MYLANLABS-2012S1024697

PATIENT
  Age: 68 Year
  Sex: Female

DRUGS (6)
  1. LEVOFLOXACIN [Suspect]
     Indication: PROPHYLAXIS
     Route: 065
  2. ATENOLOL [Concomitant]
     Route: 065
  3. AMLODIPINE [Concomitant]
     Route: 065
  4. RABEPRAZOLE [Concomitant]
     Route: 065
  5. DIPHENHYDRAMINE [Concomitant]
     Route: 065
  6. ASPIRIN [Concomitant]
     Dosage: low dose
     Route: 065

REACTIONS (3)
  - Uveitis [Recovering/Resolving]
  - Rash pustular [Unknown]
  - Chorioretinal disorder [Recovered/Resolved]
